FAERS Safety Report 13409908 (Version 1)
Quarter: 2017Q2

REPORT INFORMATION
  Report Type: Spontaneous
  Country: US (occurrence: US)
  Receive Date: 20170406
  Receipt Date: 20170406
  Transmission Date: 20170830
  Serious: No
  Sender: FDA-Public Use
  Company Number: US-PFIZER INC-2017147524

PATIENT
  Sex: Female

DRUGS (1)
  1. XELJANZ XR [Suspect]
     Active Substance: TOFACITINIB CITRATE
     Dosage: 11 MG, UNK

REACTIONS (9)
  - Temperature intolerance [Unknown]
  - Arthralgia [Unknown]
  - Memory impairment [Unknown]
  - Crepitations [Unknown]
  - Liver function test increased [Unknown]
  - Muscle spasms [Unknown]
  - Joint swelling [Unknown]
  - Synovitis [Unknown]
  - Back pain [Unknown]
